FAERS Safety Report 7205298-2 (Version None)
Quarter: 2010Q4

REPORT INFORMATION
  Report Type: 
  Country: None (occurrence: None)
  Receive Date: 20101231
  Receipt Date: 20101223
  Transmission Date: 20110411
  Serious: No
  Sender: FDA-Public Use
  Company Number: US-BIOGENIDEC-2010BI044804

PATIENT
  Sex: Female

DRUGS (5)
  1. AVONEX [Suspect]
     Indication: MULTIPLE SCLEROSIS
     Route: 030
     Dates: start: 20050509
  2. AVONEX [Suspect]
     Indication: EYE PRURITUS
     Route: 030
     Dates: start: 20050509
  3. AVONEX [Suspect]
     Indication: ABNORMAL SENSATION IN EYE
     Route: 030
     Dates: start: 20050509
  4. AVONEX [Suspect]
     Indication: VISION BLURRED
     Route: 030
     Dates: start: 20050509
  5. NEURONTIN [Concomitant]
     Indication: MUSCLE SPASMS
     Dates: start: 20000101

REACTIONS (6)
  - ABNORMAL SENSATION IN EYE [None]
  - EYE PRURITUS [None]
  - INFLUENZA LIKE ILLNESS [None]
  - MUSCLE SPASMS [None]
  - PAIN [None]
  - VISION BLURRED [None]
